FAERS Safety Report 12663021 (Version 4)
Quarter: 2017Q3

REPORT INFORMATION
  Report Type: Spontaneous
  Country: US (occurrence: US)
  Receive Date: 20160818
  Receipt Date: 20170901
  Transmission Date: 20171127
  Serious: No
  Sender: FDA-Public Use
  Company Number: PHEH2016US020598

PATIENT
  Sex: Female

DRUGS (1)
  1. VIVELLE-DOT [Suspect]
     Active Substance: ESTRADIOL
     Indication: INFERTILITY
     Dosage: 4 DF, QOD
     Route: 062
     Dates: start: 20160707, end: 20160915

REACTIONS (4)
  - Frustration tolerance decreased [Unknown]
  - Maternal exposure during pregnancy [Unknown]
  - Depressed mood [Unknown]
  - Product packaging quantity issue [Unknown]
